FAERS Safety Report 20501100 (Version 1)
Quarter: 2022Q1

REPORT INFORMATION
  Report Type: Spontaneous
  Country: JP (occurrence: JP)
  Receive Date: 20220222
  Receipt Date: 20220222
  Transmission Date: 20220423
  Serious: Yes (Other)
  Sender: FDA-Public Use
  Company Number: JP-GSKNCCC-Case-01427371_AE-55070

PATIENT
  Age: 95 Year
  Sex: Male

DRUGS (1)
  1. SOTROVIMAB [Suspect]
     Active Substance: SOTROVIMAB
     Dosage: UNK
     Dates: start: 20220212

REACTIONS (4)
  - Pneumonia [Unknown]
  - Drug-induced liver injury [Unknown]
  - Hepatic function abnormal [Unknown]
  - Vomiting [Unknown]
